FAERS Safety Report 7580672-3 (Version None)
Quarter: 2011Q2

REPORT INFORMATION
  Report Type: 
  Country: None (occurrence: None)
  Receive Date: 20110629
  Receipt Date: 20110617
  Transmission Date: 20111010
  Serious: Yes (Hospitalization, Other)
  Sender: FDA-Public Use
  Company Number: DE-ELI_LILLY_AND_COMPANY-DE201105003601

PATIENT
  Age: 40 Year
  Sex: Male

DRUGS (7)
  1. REMICADE [Concomitant]
  2. FORTEO [Suspect]
     Indication: OSTEOPOROSIS
     Dosage: UNK, QD
     Route: 058
     Dates: start: 20100517
  3. NICOTINE [Concomitant]
     Dosage: UNK
     Route: 065
  4. TILIDIN [Concomitant]
     Dosage: UNK
     Route: 065
  5. MARCUMAR [Concomitant]
     Dosage: UNK
     Route: 065
     Dates: start: 20101101
  6. CALCIUM WITH VITAMIN D [Concomitant]
     Dosage: UNK, UNKNOWN
     Route: 065
  7. OPIPRAMOL [Concomitant]
     Dosage: UNK
     Route: 065
     Dates: start: 20101001

REACTIONS (9)
  - THROMBOSIS [None]
  - CROHN'S DISEASE [None]
  - EPILEPSY [None]
  - EATING DISORDER [None]
  - WEIGHT DECREASED [None]
  - SPINAL FRACTURE [None]
  - HIP FRACTURE [None]
  - DYSPNOEA [None]
  - TREMOR [None]
